FAERS Safety Report 7984999-2 (Version None)
Quarter: 2011Q4

REPORT INFORMATION
  Report Type: 
  Country: None (occurrence: None)
  Receive Date: 20111216
  Receipt Date: 20111104
  Transmission Date: 20120403
  Serious: No
  Sender: FDA-Public Use
  Company Number: US-ALLERGAN-1114575US

PATIENT
  Age: 33 Year
  Sex: Female

DRUGS (2)
  1. BEPREVE [Concomitant]
     Indication: HYPERSENSITIVITY
     Dosage: UNK
     Route: 047
     Dates: start: 20080101
  2. LATISSE [Suspect]
     Indication: MADAROSIS
     Dosage: 2 GTT, QHS
     Route: 061
     Dates: start: 20111101, end: 20111101

REACTIONS (3)
  - EYELIDS PRURITUS [None]
  - EYELID OEDEMA [None]
  - ERYTHEMA OF EYELID [None]
